FAERS Safety Report 10163403 (Version 1)
Quarter: 2014Q2

REPORT INFORMATION
  Report Type: Spontaneous
  Country: HR (occurrence: HR)
  Receive Date: 20140509
  Receipt Date: 20140509
  Transmission Date: 20141212
  Serious: Yes (Other)
  Sender: FDA-Public Use
  Company Number: HR-009507513-1405HRV004695

PATIENT
  Sex: 0

DRUGS (1)
  1. ESMERON [Suspect]
     Indication: INDUCTION OF ANAESTHESIA
     Dosage: UNK

REACTIONS (2)
  - Cardiac arrest [Recovered/Resolved]
  - Bradycardia [Recovered/Resolved]
